FAERS Safety Report 5248534-4 (Version None)
Quarter: 2007Q1

REPORT INFORMATION
  Report Type: 
  Country: None (occurrence: None)
  Receive Date: 20070227
  Receipt Date: 20070215
  Transmission Date: 20070707
  Serious: Yes (Other)
  Sender: FDA-Public Use
  Company Number: JP-PFIZER INC-2007013103

PATIENT
  Age: 79 Year
  Sex: Female

DRUGS (3)
  1. ZYVOX [Suspect]
     Indication: STAPHYLOCOCCAL INFECTION
     Dosage: DAILY DOSE:1200MG
     Route: 042
  2. BIAPENEM [Concomitant]
     Route: 042
  3. IMMUNE GLOBULIN INTRAVENOUS (HUMAN) [Concomitant]
     Route: 042

REACTIONS (3)
  - DIZZINESS [None]
  - POLLAKIURIA [None]
  - POLYURIA [None]
